FAERS Safety Report 9652493 (Version 4)
Quarter: 2015Q1

REPORT INFORMATION
  Report Type: Report from Study
  Country: DE (occurrence: DE)
  Receive Date: 20131029
  Receipt Date: 20150309
  Transmission Date: 20150721
  Serious: Yes (Death, Hospitalization)
  Sender: FDA-Public Use
  Company Number: DE-ABBVIE-13P-062-1162710-00

PATIENT
  Age: 82 Year
  Sex: Male

DRUGS (2)
  1. LEUPRORELIN [Suspect]
     Active Substance: LEUPROLIDE ACETATE
     Indication: PROSTATIC SPECIFIC ANTIGEN INCREASED
  2. LEUPRORELIN [Suspect]
     Active Substance: LEUPROLIDE ACETATE
     Indication: PROSTATE CANCER
     Route: 065
     Dates: start: 20121008, end: 20140606

REACTIONS (6)
  - Prostate cancer [Fatal]
  - Ileus [Fatal]
  - Urethral obstruction [Unknown]
  - Haematuria [Unknown]
  - Hormone-refractory prostate cancer [Unknown]
  - Metastases to peritoneum [Fatal]

NARRATIVE: CASE EVENT DATE: 2013
